FAERS Safety Report 7418853-1 (Version None)
Quarter: 2011Q2

REPORT INFORMATION
  Report Type: 
  Country: None (occurrence: None)
  Receive Date: 20110415
  Receipt Date: 20110411
  Transmission Date: 20111010
  Serious: No
  Sender: FDA-Public Use
  Company Number: US-PFIZER INC-2011079840

PATIENT
  Sex: Female
  Weight: 54.4 kg

DRUGS (3)
  1. DYAZIDE [Concomitant]
     Indication: DIURETIC THERAPY
     Dosage: 37.5 MG, 1X/DAY
     Route: 048
  2. DEPO-ESTRADIOL [Suspect]
     Dosage: UNK
     Route: 051
     Dates: start: 20110330, end: 20110330
  3. DYAZIDE [Concomitant]
     Indication: OEDEMA

REACTIONS (10)
  - BREAST TENDERNESS [None]
  - HYPOAESTHESIA [None]
  - JOINT SWELLING [None]
  - NAUSEA [None]
  - BACK PAIN [None]
  - SWELLING [None]
  - PAIN IN EXTREMITY [None]
  - ARTHRALGIA [None]
  - ABDOMINAL DISTENSION [None]
  - CONDITION AGGRAVATED [None]
